FAERS Safety Report 6580150-4 (Version None)
Quarter: 2010Q1

REPORT INFORMATION
  Report Type: 
  Country: None (occurrence: None)
  Receive Date: 20100203
  Receipt Date: 20100126
  Transmission Date: 20100710
  Serious: Yes (Hospitalization, Other)
  Sender: FDA-Public Use
  Company Number: 2009-189179-NL

PATIENT
  Age: 25 Year
  Sex: Female
  Weight: 52.2 kg

DRUGS (9)
  1. NUVARING [Suspect]
     Indication: DRUG USE FOR UNKNOWN INDICATION
     Dates: start: 19950101, end: 20061223
  2. AMBIEN [Concomitant]
  3. CELEXA [Concomitant]
  4. XANAX [Concomitant]
  5. VIOXX [Concomitant]
  6. AMERGE [Concomitant]
  7. EFFEXOR XR [Concomitant]
  8. TOPAMAX [Concomitant]
  9. RELPAX [Concomitant]

REACTIONS (16)
  - ALOPECIA [None]
  - ANXIETY [None]
  - APHASIA [None]
  - ASTHENIA [None]
  - ATRIAL SEPTAL DEFECT [None]
  - CEREBROVASCULAR ACCIDENT [None]
  - CLUMSINESS [None]
  - DEPRESSION [None]
  - DYSARTHRIA [None]
  - EPISTAXIS [None]
  - FATIGUE [None]
  - INSOMNIA [None]
  - MIGRAINE [None]
  - NAUSEA [None]
  - RASH [None]
  - VASOSPASM [None]
